FAERS Safety Report 4299962-5 (Version None)
Quarter: 2004Q1

REPORT INFORMATION
  Report Type: 
  Country: None (occurrence: None)
  Receive Date: 20040218
  Receipt Date: 20040209
  Transmission Date: 20041129
  Serious: Yes (Death, Other)
  Sender: FDA-Public Use
  Company Number: GB-JNJFOC-20040201944

PATIENT
  Age: 58 Year
  Sex: Male

DRUGS (14)
  1. HALOPERIDOL [Suspect]
     Indication: DEMENTIA ALZHEIMER'S TYPE
     Dosage: , IN 1 DAY
     Dates: start: 20020314
  2. ZIMOVANE (ZOPICLONE) [Suspect]
     Indication: DRUG USE FOR UNKNOWN INDICATION
     Dosage: 15 MG, IN 1 DAY, ORAL
     Route: 048
  3. CHLORPROMAZINE [Concomitant]
  4. PROCYCLIDINE HYDROCHLORIDE 2MG TAB [Concomitant]
  5. CARBAMAZEPINE [Concomitant]
  6. AMISULPIRIDE (AMISULPRIDE) [Concomitant]
  7. DIAZEPAM [Concomitant]
  8. BECLOMETHASONE (BECLMETHASONE) [Concomitant]
  9. SALBUTAMOL (SALBUTAMOL) [Concomitant]
  10. OLANZAPINE [Concomitant]
  11. FOLIC ACID [Concomitant]
  12. MOVICOL (MULYTELY) [Concomitant]
  13. MACROGOL (MACROGOL) [Concomitant]
  14. POTASSIUM CHLORIDE [Concomitant]

REACTIONS (2)
  - BRONCHOPNEUMONIA [None]
  - MEDICATION ERROR [None]
